FAERS Safety Report 7064693-5 (Version None)
Quarter: 2010Q4

REPORT INFORMATION
  Report Type: 
  Country: None (occurrence: None)
  Receive Date: 20101022
  Receipt Date: 20101022
  Transmission Date: 20110411
  Serious: No
  Sender: FDA-Public Use
  Company Number: None

PATIENT
  Age: 42 Year
  Sex: Female

DRUGS (1)
  1. TRI-PREVIFEM [Suspect]
     Dosage: 1 PO DAILY
     Route: 048
     Dates: start: 20101001

REACTIONS (4)
  - HAEMATOCHEZIA [None]
  - MIGRAINE [None]
  - PAIN IN EXTREMITY [None]
  - PRODUCT SUBSTITUTION ISSUE [None]
